FAERS Safety Report 9384002 (Version 1)
Quarter: 2013Q3

REPORT INFORMATION
  Report Type: Spontaneous
  Country: US (occurrence: US)
  Receive Date: 20130705
  Receipt Date: 20130705
  Transmission Date: 20140515
  Serious: No
  Sender: FDA-Public Use
  Company Number: US-JNJFOC-20130616740

PATIENT
  Age: 44 Year
  Sex: Female
  Weight: 79.38 kg

DRUGS (15)
  1. DURAGESIC [Suspect]
     Indication: INTERVERTEBRAL DISC DEGENERATION
     Route: 062
     Dates: start: 20130613
  2. DURAGESIC [Suspect]
     Indication: FIBROMYALGIA
     Route: 062
     Dates: start: 20130613
  3. DURAGESIC [Suspect]
     Indication: SYSTEMIC LUPUS ERYTHEMATOSUS
     Route: 062
     Dates: start: 20130613
  4. OXYCODONE [Concomitant]
     Indication: PAIN
     Route: 048
  5. KLONOPIN [Concomitant]
     Indication: INSOMNIA
     Route: 048
     Dates: start: 2013
  6. CYMBALTA [Concomitant]
     Indication: PAIN
     Route: 048
     Dates: start: 2013
  7. CYMBALTA [Concomitant]
     Indication: PAIN
     Route: 048
     Dates: start: 2013
  8. CYMBALTA [Concomitant]
     Indication: DEPRESSION
     Route: 048
     Dates: start: 2013
  9. CYMBALTA [Concomitant]
     Indication: DEPRESSION
     Route: 048
     Dates: start: 2013
  10. PHENERGAN [Concomitant]
     Indication: NAUSEA
     Route: 048
     Dates: start: 2012
  11. LISINOPRIL [Concomitant]
     Indication: BLOOD PRESSURE
     Route: 048
     Dates: start: 2011
  12. LISINOPRIL [Concomitant]
     Indication: BLOOD PRESSURE
     Route: 048
     Dates: start: 2011
  13. FLEXERIL [Concomitant]
     Indication: MUSCLE SPASMS
     Route: 048
     Dates: start: 2011
  14. PRO AIR [Concomitant]
     Indication: CHRONIC OBSTRUCTIVE PULMONARY DISEASE
     Dosage: AS NEEDED
     Route: 048
     Dates: start: 2011
  15. DULERA [Concomitant]
     Indication: CHRONIC OBSTRUCTIVE PULMONARY DISEASE
     Route: 048
     Dates: start: 2011

REACTIONS (4)
  - Wrong technique in drug usage process [Not Recovered/Not Resolved]
  - Wrong technique in drug usage process [Not Recovered/Not Resolved]
  - Product quality issue [Unknown]
  - Off label use [Unknown]
